FAERS Safety Report 4804821-2 (Version None)
Quarter: 2005Q4

REPORT INFORMATION
  Report Type: 
  Country: None (occurrence: None)
  Receive Date: 20051017
  Receipt Date: 20051003
  Transmission Date: 20060501
  Serious: Yes (Life-Threatening, Hospitalization, Disabling, Other)
  Sender: FDA-Public Use
  Company Number: 2005137544

PATIENT
  Sex: Female

DRUGS (6)
  1. DETROL LA [Suspect]
     Indication: HYPERTONIC BLADDER
     Dosage: 4 MG (4MG, 1 IN 1 D), ORAL
     Route: 048
  2. XANAX [Suspect]
     Indication: NERVOUSNESS
  3. METFORMIN HCL [Suspect]
     Indication: DIABETES MELLITUS NON-INSULIN-DEPENDENT
     Dates: start: 20050101, end: 20050901
  4. ALL OTHER NON-THERAPEUTIC PRODUCTS (ALL OTHER NON-THERAPEUTIC PRODUCTS [Suspect]
     Indication: ILL-DEFINED DISORDER
     Dosage: INTRAVENOUS
     Route: 042
     Dates: start: 20050101, end: 20050101
  5. INDERAL  - SLOW RELEASE (PROPRANOLOL HYDROCHLORIDE) [Concomitant]
  6. ALLEGRA [Concomitant]

REACTIONS (9)
  - CARDIO-RESPIRATORY ARREST [None]
  - COLON CANCER [None]
  - CONSTIPATION [None]
  - DIABETES MELLITUS NON-INSULIN-DEPENDENT [None]
  - DIFFICULTY IN WALKING [None]
  - LOSS OF CONSCIOUSNESS [None]
  - MALAISE [None]
  - MEMORY IMPAIRMENT [None]
  - NERVOUSNESS [None]
